FAERS Safety Report 4902474-6 (Version None)
Quarter: 2006Q1

REPORT INFORMATION
  Report Type: 
  Country: None (occurrence: None)
  Receive Date: 20060202
  Receipt Date: 20060120
  Transmission Date: 20060701
  Serious: Yes (Other)
  Sender: FDA-Public Use
  Company Number: 805#1#2006-00003

PATIENT
  Age: 90 Year
  Sex: Female

DRUGS (4)
  1. ALPROSTADIL [Suspect]
     Indication: ARTERIOSCLEROSIS OBLITERANS
     Dosage: 120 MCG; INTRAVENOUS DRIP
     Route: 041
     Dates: start: 20051219, end: 20060102
  2. SODIUM BICARBONATE [Concomitant]
  3. SULBACTAM SODIUM/AMPICILLIN SODIUM [Concomitant]
  4. NEUROTROPIN (ORGAN LYSATE, STANDARDIZED) [Concomitant]

REACTIONS (1)
  - HYPONATRAEMIA [None]
